FAERS Safety Report 16816225 (Version 1)
Quarter: 2019Q3

REPORT INFORMATION
  Report Type: Spontaneous
  Country: US (occurrence: US)
  Receive Date: 20190725
  Receipt Date: 20190725
  Transmission Date: 20191005
  Serious: No
  Sender: FDA-Public Use
  Company Number: None

PATIENT
  Age: 70 Year
  Sex: Male
  Weight: 83.91 kg

DRUGS (3)
  1. LITHIUM. [Suspect]
     Active Substance: LITHIUM
     Indication: BIPOLAR DISORDER
     Dosage: ?          OTHER DOSE:TAB;?
     Route: 048
  2. LITHIUM. [Suspect]
     Active Substance: LITHIUM
     Indication: SCHIZOAFFECTIVE DISORDER
     Route: 048
     Dates: start: 20180913, end: 20180928
  3. LITHIUM. [Suspect]
     Active Substance: LITHIUM
     Indication: MANIA
     Dosage: ?          OTHER DOSE:TAB;?
     Route: 048

REACTIONS (6)
  - Tachycardia [None]
  - Diarrhoea [None]
  - Constipation [None]
  - Hyperhidrosis [None]
  - Agitation [None]
  - Tremor [None]

NARRATIVE: CASE EVENT DATE: 20180929
